FAERS Safety Report 5485184-9 (Version None)
Quarter: 2007Q4

REPORT INFORMATION
  Report Type: 
  Country: None (occurrence: None)
  Receive Date: 20071010
  Receipt Date: 20071010
  Transmission Date: 20080405
  Serious: Yes (Hospitalization)
  Sender: FDA-Public Use
  Company Number: None

PATIENT
  Age: 27 Year
  Sex: Male

DRUGS (2)
  1. STANOZOLOL [Suspect]
     Dosage: 45MG X2 PO
     Route: 048
     Dates: start: 20070310, end: 20070312
  2. ZOFRAN [Concomitant]

REACTIONS (5)
  - CONVULSION [None]
  - DIZZINESS [None]
  - LOSS OF CONSCIOUSNESS [None]
  - NAUSEA [None]
  - UNRESPONSIVE TO STIMULI [None]
